FAERS Safety Report 8376160-7 (Version None)
Quarter: 2012Q2

REPORT INFORMATION
  Report Type: 
  Country: None (occurrence: None)
  Receive Date: 20120522
  Receipt Date: 20120520
  Transmission Date: 20120825
  Serious: Yes (Death, Other)
  Sender: FDA-Public Use
  Company Number: PHHY2012DE042818

PATIENT

DRUGS (8)
  1. VALGANCICLOVIR [Concomitant]
  2. ALEMTUZUMAB [Concomitant]
     Dosage: 10 TO 20 MG
  3. GANCICLOVIR [Concomitant]
  4. FLUDARABINE PHOSPHATE [Concomitant]
     Dosage: 25 MG/M2, QD ON DAYS -6 TO -4
  5. THIOTEPA [Concomitant]
     Dosage: 5 MG/KG, BID ON DAYS -5 AND -4
  6. FOSCARNET [Concomitant]
  7. CARMUSTINE [Concomitant]
     Dosage: 400 MG/M2, ON DAY -6
  8. CYCLOSPORINE [Suspect]
     Indication: PROPHYLAXIS AGAINST GRAFT VERSUS HOST DISEASE
     Dosage: 2.5 MG/KG, BID
     Route: 042

REACTIONS (4)
  - EPILEPSY [None]
  - PNEUMONIA [None]
  - SUBDURAL HAEMATOMA [None]
  - STUPOR [None]
